FAERS Safety Report 6243399-6 (Version None)
Quarter: 2009Q2

REPORT INFORMATION
  Report Type: 
  Country: None (occurrence: None)
  Receive Date: 20090622
  Receipt Date: 20090622
  Transmission Date: 20091009
  Serious: No
  Sender: FDA-Public Use
  Company Number: None

PATIENT
  Age: 57 Year
  Sex: Female
  Weight: 87.9978 kg

DRUGS (1)
  1. ZICAM NASAL SWABS [Suspect]
     Indication: NASOPHARYNGITIS
     Dosage: ONE SWAB ONE TIME USAGE NASAL
     Route: 045
     Dates: start: 20071101, end: 20071101

REACTIONS (2)
  - ANOSMIA [None]
  - NASAL DISCOMFORT [None]
